FAERS Safety Report 7957012-0 (Version None)
Quarter: 2011Q4

REPORT INFORMATION
  Report Type: 
  Country: None (occurrence: None)
  Receive Date: 20111205
  Receipt Date: 20111205
  Transmission Date: 20120403
  Serious: Yes (Other)
  Sender: FDA-Public Use
  Company Number: None

PATIENT
  Age: 34 Year
  Sex: Male
  Weight: 74.842 kg

DRUGS (1)
  1. TOBRADEX [Suspect]
     Indication: CONJUNCTIVITIS
     Dosage: 5 DROPS A DAY
     Route: 061
     Dates: start: 19941024, end: 19950615

REACTIONS (1)
  - LENS DISORDER [None]
